FAERS Safety Report 12162305 (Version 1)
Quarter: 2016Q1

REPORT INFORMATION
  Report Type: Spontaneous
  Country: US (occurrence: None)
  Receive Date: 20160308
  Receipt Date: 20160308
  Transmission Date: 20160526
  Serious: Yes (Hospitalization)
  Sender: FDA-Public Use
  Company Number: None

PATIENT
  Age: 75 Year
  Sex: Male
  Weight: 67.6 kg

DRUGS (12)
  1. WARFARIN 2MG [Suspect]
     Active Substance: WARFARIN
     Indication: DEEP VEIN THROMBOSIS
     Dosage: CHRONIC
     Route: 048
  2. NORVASC [Concomitant]
     Active Substance: AMLODIPINE BESYLATE
  3. BUMEX [Concomitant]
     Active Substance: BUMETANIDE
  4. ATIVAN [Concomitant]
     Active Substance: LORAZEPAM
  5. PRILOSEC [Concomitant]
     Active Substance: OMEPRAZOLE MAGNESIUM
  6. ZOCOR [Concomitant]
     Active Substance: SIMVASTATIN
  7. MOBIC [Concomitant]
     Active Substance: MELOXICAM
  8. NEURONTIN [Concomitant]
     Active Substance: GABAPENTIN
  9. MMW [Concomitant]
  10. PRINZIDE [Concomitant]
     Active Substance: HYDROCHLOROTHIAZIDE\LISINOPRIL
  11. ASPIRIN 81MG [Suspect]
     Active Substance: ASPIRIN
     Indication: DEEP VEIN THROMBOSIS
     Dosage: CHRONIC
     Route: 048
  12. ROXICET [Concomitant]
     Active Substance: ACETAMINOPHEN\OXYCODONE HYDROCHLORIDE

REACTIONS (3)
  - Gastrointestinal haemorrhage [None]
  - Coagulopathy [None]
  - Anaemia [None]

NARRATIVE: CASE EVENT DATE: 20151023
